FAERS Safety Report 4892179-2 (Version None)
Quarter: 2006Q1

REPORT INFORMATION
  Report Type: 
  Country: None (occurrence: None)
  Receive Date: 20060123
  Receipt Date: 20060113
  Transmission Date: 20060701
  Serious: Yes (Death)
  Sender: FDA-Public Use
  Company Number: 221097

PATIENT
  Age: 79 Year
  Sex: Female

DRUGS (2)
  1. GRTPA (ALTEPLASE) PWDR + SOLVENT, INFUSION SOLN [Suspect]
     Indication: CEREBRAL ARTERY EMBOLISM
     Dosage: 26.1 MG, INTRAVENOUS
     Route: 042
     Dates: start: 20060107, end: 20060107
  2. ASPIRIN [Suspect]

REACTIONS (3)
  - CARDIO-RESPIRATORY ARREST [None]
  - HAEMATOCRIT DECREASED [None]
  - PLATELET COUNT DECREASED [None]
